FAERS Safety Report 18364702 (Version 3)
Quarter: 2020Q4

REPORT INFORMATION
  Report Type: Spontaneous
  Country: US (occurrence: US)
  Receive Date: 20201009
  Receipt Date: 20201013
  Transmission Date: 20210114
  Serious: Yes (Other)
  Sender: FDA-Public Use
  Company Number: US-SA-2020SA275542

PATIENT

DRUGS (2)
  1. DUPIXENT [Suspect]
     Active Substance: DUPILUMAB
     Indication: DYSHIDROTIC ECZEMA
     Dosage: 600 MG, 1X
     Route: 058
     Dates: start: 20200507, end: 20200507
  2. DUPIXENT [Suspect]
     Active Substance: DUPILUMAB
     Dosage: 300 MG, QOW
     Route: 058
     Dates: start: 2020, end: 20200731

REACTIONS (17)
  - Erythema nodosum [Unknown]
  - Bone pain [Unknown]
  - Mouth breathing [Not Recovered/Not Resolved]
  - Hot flush [Unknown]
  - Condition aggravated [Unknown]
  - Nasal cavity mass [Not Recovered/Not Resolved]
  - Pain [Not Recovered/Not Resolved]
  - Rash [Unknown]
  - Dyspnoea [Unknown]
  - Dizziness [Unknown]
  - Feeling abnormal [Unknown]
  - Lipoedema [Unknown]
  - Adverse drug reaction [Unknown]
  - Migraine [Unknown]
  - Nausea [Unknown]
  - Urticaria [Unknown]
  - Fatigue [Unknown]

NARRATIVE: CASE EVENT DATE: 2020
